FAERS Safety Report 24095483 (Version 1)
Quarter: 2024Q3

REPORT INFORMATION
  Report Type: Report from Study
  Country: US (occurrence: None)
  Receive Date: 20240716
  Receipt Date: 20240716
  Transmission Date: 20241017
  Serious: Yes (Hospitalization)
  Sender: ASTRAZENECA
  Company Number: 2020SF02132

PATIENT
  Age: 23653 Day
  Sex: Male

DRUGS (12)
  1. CALQUENCE [Suspect]
     Active Substance: ACALABRUTINIB
     Indication: Chronic lymphocytic leukaemia
     Route: 048
     Dates: start: 20200804, end: 20200807
  2. LISINOPRIL [Suspect]
     Active Substance: LISINOPRIL
     Route: 048
  3. METOPROLOL [Suspect]
     Active Substance: METOPROLOL
     Dosage: 100.0MG UNKNOWN
  4. TAMSULOSIN [Concomitant]
     Active Substance: TAMSULOSIN
  5. IRBESARTAN [Concomitant]
     Active Substance: IRBESARTAN
  6. FUOSEMIDE [Concomitant]
     Active Substance: FUROSEMIDE
  7. FINASTERIDE [Concomitant]
     Active Substance: FINASTERIDE
  8. ELIQUIS [Concomitant]
     Active Substance: APIXABAN
  9. CITALOPRAM [Concomitant]
     Active Substance: CITALOPRAM\CITALOPRAM HYDROBROMIDE
  10. ATORVASTATIN [Concomitant]
     Active Substance: ATORVASTATIN
     Dosage: 40.0MG UNKNOWN
  11. AMBIEN [Concomitant]
     Active Substance: ZOLPIDEM TARTRATE
  12. ALLOPURINOL [Concomitant]
     Active Substance: ALLOPURINOL

REACTIONS (1)
  - Pleural effusion [Recovered/Resolved]

NARRATIVE: CASE EVENT DATE: 20200807
